FAERS Safety Report 8374271-3 (Version None)
Quarter: 2012Q2

REPORT INFORMATION
  Report Type: 
  Country: None (occurrence: None)
  Receive Date: 20120521
  Receipt Date: 20120520
  Transmission Date: 20120825
  Serious: Yes (Other)
  Sender: FDA-Public Use
  Company Number: US-PFIZER INC-2012122034

PATIENT
  Sex: Female

DRUGS (1)
  1. CHANTIX [Suspect]
     Dosage: UNK
     Dates: start: 20120513, end: 20120517

REACTIONS (5)
  - INSOMNIA [None]
  - APHAGIA [None]
  - FAECES DISCOLOURED [None]
  - HYPERSENSITIVITY [None]
  - VOMITING [None]
